FAERS Safety Report 20925525 (Version 2)
Quarter: 2022Q3

REPORT INFORMATION
  Report Type: Report from Study
  Country: US (occurrence: US)
  Receive Date: 20220607
  Receipt Date: 20220901
  Transmission Date: 20221027
  Serious: Yes (Other)
  Sender: FDA-Public Use
  Company Number: US-BRISTOL-MYERS SQUIBB COMPANY-2022-047813

PATIENT
  Age: 42 Year
  Sex: Male
  Weight: 87.09 kg

DRUGS (2)
  1. REVLIMID [Suspect]
     Active Substance: LENALIDOMIDE
     Indication: Plasma cell myeloma
     Dosage: DAY 1-21 DAYS , 28 DAYS CYCLE
     Route: 048
  2. REVLIMID [Suspect]
     Active Substance: LENALIDOMIDE
     Dosage: DAY 1-21 DAYS , 28 DAYS CYCLE
     Route: 048

REACTIONS (3)
  - Appendix disorder [Recovered/Resolved]
  - Upper respiratory tract infection [Unknown]
  - Eye infection [Unknown]

NARRATIVE: CASE EVENT DATE: 20220101
